FAERS Safety Report 9465199 (Version 4)
Quarter: 2013Q4

REPORT INFORMATION
  Report Type: Spontaneous
  Country: US (occurrence: US)
  Receive Date: 20130819
  Receipt Date: 20131204
  Transmission Date: 20140711
  Serious: Yes (Hospitalization)
  Sender: FDA-Public Use
  Company Number: US-GILEAD-2013-0078987

PATIENT
  Sex: Female

DRUGS (13)
  1. LETAIRIS [Suspect]
     Indication: PULMONARY HYPERTENSION
     Dosage: 5 MG, QD
     Route: 048
     Dates: start: 20130516
  2. LETAIRIS [Suspect]
     Dosage: 5 MG, BID
     Route: 048
  3. BIOTINE [Concomitant]
  4. RECLAST [Concomitant]
  5. TRIAMCINOLONE + EMOLLIENT [Concomitant]
  6. NITRO-BID [Concomitant]
  7. LISINOPRIL [Concomitant]
  8. FOLIC ACID [Concomitant]
  9. FLUTICASONE PROPIONATE [Concomitant]
  10. LEVOTHROID [Concomitant]
  11. OMEPRAZOLE [Concomitant]
  12. TRAMADOL [Concomitant]
  13. EVOXAC [Concomitant]

REACTIONS (4)
  - Diarrhoea [Unknown]
  - Feeling cold [Unknown]
  - Abdominal pain upper [Unknown]
  - Nasal congestion [Unknown]
